FAERS Safety Report 8586874-1 (Version None)
Quarter: 2012Q3

REPORT INFORMATION
  Report Type: 
  Country: None (occurrence: None)
  Receive Date: 20120810
  Receipt Date: 20120727
  Transmission Date: 20120928
  Serious: Yes (Other)
  Sender: FDA-Public Use
  Company Number: CHPA2012US016950

PATIENT
  Age: 70 Year
  Sex: Female

DRUGS (1)
  1. EXCEDRIN EXTRA STRENGTH TABLETS [Suspect]
     Indication: HEADACHE
     Dosage: UNK, PRN
     Route: 048
     Dates: end: 20120101

REACTIONS (2)
  - COUGH [None]
  - LOWER RESPIRATORY TRACT INFECTION [None]
